FAERS Safety Report 22175015 (Version 1)
Quarter: 2023Q2

REPORT INFORMATION
  Report Type: Spontaneous
  Country: HR (occurrence: HR)
  Receive Date: 20230405
  Receipt Date: 20230405
  Transmission Date: 20230722
  Serious: Yes (Other)
  Sender: FDA-Public Use
  Company Number: HR-BAYER-2021A226415

PATIENT
  Age: 75 Year

DRUGS (8)
  1. XARELTO [Suspect]
     Active Substance: RIVAROXABAN
     Indication: Atrial fibrillation
     Dosage: 20 MG
     Route: 048
  2. WARFARIN [Suspect]
     Active Substance: WARFARIN
  3. METILDIGOXIN [Concomitant]
     Active Substance: METILDIGOXIN
  4. CARVEDILOL [Concomitant]
     Active Substance: CARVEDILOL
  5. ASPIRIN [Concomitant]
     Active Substance: ASPIRIN
     Dosage: 100 MG
  6. FUROSEMIDE [Concomitant]
     Active Substance: FUROSEMIDE
  7. CITRIC ACID MONOHYDRATE\POTASSIUM BICARBONATE\POTASSIUM CITRATE [Concomitant]
     Active Substance: CITRIC ACID MONOHYDRATE\POTASSIUM BICARBONATE\POTASSIUM CITRATE
  8. RAMIPRIL [Concomitant]
     Active Substance: RAMIPRIL

REACTIONS (3)
  - Cerebrovascular accident [Recovered/Resolved]
  - Hemiplegia [Recovered/Resolved]
  - Aphasia [Recovered/Resolved]
